FAERS Safety Report 6920038-X (Version None)
Quarter: 2010Q3

REPORT INFORMATION
  Report Type: 
  Country: None (occurrence: None)
  Receive Date: 20100730
  Receipt Date: 20090917
  Transmission Date: 20110219
  Serious: Yes (Death, Hospitalization)
  Sender: FDA-Public Use
  Company Number: OMPQ-PR-0909S-0811

PATIENT
  Age: 62 Year
  Sex: Male

DRUGS (3)
  1. OMNIPAQUE 140 [Suspect]
     Indication: ARTHRALGIA
     Dosage: 3 ML, SINGLE DOSE, INTRA-ARTICULAR
     Route: 014
     Dates: start: 20090915, end: 20090915
  2. LIDOCAINE [Suspect]
     Dosage: INTRA-ARTICULAR
     Route: 014
     Dates: start: 20090915, end: 20090915
  3. KENALOG [Suspect]
     Dosage: INTRA-ARTICULAR
     Route: 014
     Dates: start: 20090915, end: 20090915

REACTIONS (10)
  - ANAPHYLACTOID REACTION [None]
  - ASTHENIA [None]
  - DYSPNOEA [None]
  - FALL [None]
  - GENERALISED ERYTHEMA [None]
  - HEAD INJURY [None]
  - HYPERHIDROSIS [None]
  - LOSS OF CONSCIOUSNESS [None]
  - MALAISE [None]
  - TACHYCARDIA [None]
